FAERS Safety Report 13552970 (Version 1)
Quarter: 2017Q2

REPORT INFORMATION
  Report Type: Spontaneous
  Country: US (occurrence: US)
  Receive Date: 20170517
  Receipt Date: 20170517
  Transmission Date: 20170830
  Serious: Yes (Other)
  Sender: FDA-Public Use
  Company Number: US-PFIZER INC-2017212251

PATIENT
  Age: 80 Year
  Sex: Male
  Weight: 86.18 kg

DRUGS (3)
  1. PREGABALIN. [Suspect]
     Active Substance: PREGABALIN
     Indication: PAIN IN EXTREMITY
     Dosage: 50 MG, DAILY
     Route: 048
     Dates: start: 2016, end: 2016
  2. PREGABALIN. [Suspect]
     Active Substance: PREGABALIN
     Dosage: 100 MG, 3X/DAY
     Route: 048
     Dates: start: 201606
  3. PREGABALIN. [Suspect]
     Active Substance: PREGABALIN
     Dosage: 100 MG, DAILY
     Route: 048
     Dates: start: 2016, end: 2016

REACTIONS (4)
  - Nail disorder [Not Recovered/Not Resolved]
  - Drug ineffective [Unknown]
  - Onychalgia [Not Recovered/Not Resolved]
  - Renal impairment [Unknown]

NARRATIVE: CASE EVENT DATE: 2016
